FAERS Safety Report 16261542 (Version 5)
Quarter: 2019Q2

REPORT INFORMATION
  Report Type: Spontaneous
  Country: US (occurrence: US)
  Receive Date: 20190501
  Receipt Date: 20190606
  Transmission Date: 20190711
  Serious: No
  Sender: FDA-Public Use
  Company Number: US-SA-2019SA113693

PATIENT
  Age: 63 Year
  Sex: Male

DRUGS (1)
  1. LANTUS [Suspect]
     Active Substance: INSULIN GLARGINE
     Indication: DIABETES MELLITUS
     Dosage: 50 UNITS IN THE EVENING AND 40 IN THE MORNING
     Route: 065

REACTIONS (5)
  - Inappropriate schedule of product administration [Unknown]
  - Product storage error [Unknown]
  - Drug ineffective [Unknown]
  - Product use complaint [Unknown]
  - Blood glucose increased [Unknown]
